FAERS Safety Report 11796116 (Version 7)
Quarter: 2019Q2

REPORT INFORMATION
  Report Type: Spontaneous
  Country: US (occurrence: US)
  Receive Date: 20151203
  Receipt Date: 20190430
  Transmission Date: 20190711
  Serious: Yes (Hospitalization, Other)
  Sender: FDA-Public Use
  Company Number: US-PFIZER INC-2015388250

PATIENT
  Age: 72 Year
  Sex: Male
  Weight: 99.8 kg

DRUGS (2)
  1. REVATIO [Suspect]
     Active Substance: SILDENAFIL CITRATE
     Indication: PULMONARY HYPERTENSION
     Dosage: 40 MG (2 TABLETS), 3X/DAY
     Route: 048
  2. REVATIO [Suspect]
     Active Substance: SILDENAFIL CITRATE
     Indication: PULMONARY ARTERIAL HYPERTENSION
     Dosage: 40 MG (2 TABLETS), 3X/DAY
     Route: 048

REACTIONS (7)
  - Seasonal allergy [Unknown]
  - Lower limb fracture [Recovering/Resolving]
  - Product use issue [Unknown]
  - Expired product administered [Unknown]
  - Weight decreased [Recovering/Resolving]
  - Diabetes mellitus [Unknown]
  - Musculoskeletal stiffness [Unknown]

NARRATIVE: CASE EVENT DATE: 201703
